FAERS Safety Report 7564687-7 (Version None)
Quarter: 2011Q2

REPORT INFORMATION
  Report Type: 
  Country: None (occurrence: None)
  Receive Date: 20110622
  Receipt Date: 20100827
  Transmission Date: 20111010
  Serious: Yes (Other)
  Sender: FDA-Public Use
  Company Number: US-MYLANLABS-2010S1015790

PATIENT
  Age: 19 Year
  Sex: Female

DRUGS (9)
  1. DIVALPROEX SODIUM [Concomitant]
  2. DIVALPROEX SODIUM [Concomitant]
  3. FOLIC ACID [Concomitant]
  4. PHENYTOIN [Concomitant]
  5. PROAIR HFA [Concomitant]
  6. ABILIFY [Concomitant]
  7. CLOZAPINE [Suspect]
     Indication: SCHIZOPHRENIA
     Route: 048
     Dates: end: 20100818
  8. BENZTROPINE MESYLATE [Concomitant]
  9. METFORMIN HCL [Concomitant]

REACTIONS (1)
  - GRANULOCYTOPENIA [None]
